FAERS Safety Report 8114755-6 (Version None)
Quarter: 2012Q1

REPORT INFORMATION
  Report Type: 
  Country: None (occurrence: None)
  Receive Date: 20120206
  Receipt Date: 20120127
  Transmission Date: 20120608
  Serious: Yes (Other)
  Sender: FDA-Public Use
  Company Number: CN-US-EMD SERONO, INC.-7109653

PATIENT
  Age: 34 Year
  Sex: Female

DRUGS (4)
  1. PROGESTERONE [Suspect]
     Indication: ASSISTED FERTILISATION
     Route: 030
  2. CHORIOGONADOTROPIN ALFA [Suspect]
     Indication: OVULATION INDUCTION
  3. PURIFIED GN (GONADOTROPIN) [Suspect]
     Indication: ASSISTED FERTILISATION
  4. GNRH (GONADOTROPIN-RELEASING HORMONE) ANALOGUE [Suspect]
     Indication: ASSISTED FERTILISATION

REACTIONS (4)
  - TWIN PREGNANCY [None]
  - METASTASES TO LUNG [None]
  - VAGINAL HAEMORRHAGE [None]
  - BENIGN HYDATIDIFORM MOLE [None]
